FAERS Safety Report 20679638 (Version 1)
Quarter: 2022Q2

REPORT INFORMATION
  Report Type: Spontaneous
  Country: CA (occurrence: CA)
  Receive Date: 20220406
  Receipt Date: 20220406
  Transmission Date: 20220721
  Serious: Yes (Other)
  Sender: FDA-Public Use
  Company Number: CA-ABBVIE-22K-028-4344104-00

PATIENT
  Age: 78 Year
  Sex: Male

DRUGS (7)
  1. HUMIRA [Suspect]
     Active Substance: ADALIMUMAB
     Indication: Psoriasis
     Route: 058
  2. SKYRIZI [Suspect]
     Active Substance: RISANKIZUMAB-RZAA
     Indication: Product used for unknown indication
     Route: 058
  3. ACITRETIN [Suspect]
     Active Substance: ACITRETIN
     Indication: Product used for unknown indication
     Route: 048
  4. ALITRETINOIN [Suspect]
     Active Substance: ALITRETINOIN
     Indication: Product used for unknown indication
     Route: 065
  5. Liquor carbonis distillate [Concomitant]
     Indication: Product used for unknown indication
     Route: 061
  6. SALICYLIC ACID IN CLOBETASOL [Concomitant]
     Indication: Product used for unknown indication
  7. BRODALUMAB [Concomitant]
     Active Substance: BRODALUMAB
     Indication: Product used for unknown indication

REACTIONS (15)
  - Bladder cancer [Not Recovered/Not Resolved]
  - Epidermal necrosis [Unknown]
  - Lymphocytic infiltration [Unknown]
  - Dermatitis psoriasiform [Unknown]
  - Drug intolerance [Unknown]
  - Unevaluable event [Unknown]
  - Drug intolerance [Unknown]
  - Psoriasis [Unknown]
  - Hyperkeratosis [Unknown]
  - Parakeratosis [Unknown]
  - Acanthosis [Unknown]
  - Eczema [Unknown]
  - Drug ineffective [Unknown]
  - Acrokeratosis paraneoplastica [Unknown]
  - Lichenoid keratosis [Unknown]
